FAERS Safety Report 5871280-0 (Version None)
Quarter: 2008Q3

REPORT INFORMATION
  Report Type: 
  Country: None (occurrence: None)
  Receive Date: 20080905
  Receipt Date: 20080901
  Transmission Date: 20090109
  Serious: Yes (Other)
  Sender: FDA-Public Use
  Company Number: FR-WYE-G02093708

PATIENT
  Sex: Female

DRUGS (1)
  1. ADVIL [Suspect]
     Indication: MIGRAINE
     Dosage: COURSE OF 8 DAYS PER MONTH
     Route: 048
     Dates: start: 20080301

REACTIONS (1)
  - ANALGESIC ASTHMA SYNDROME [None]
